FAERS Safety Report 14763688 (Version 1)
Quarter: 2018Q2

REPORT INFORMATION
  Report Type: Spontaneous
  Country: DE (occurrence: DE)
  Receive Date: 20180416
  Receipt Date: 20180416
  Transmission Date: 20180711
  Serious: Yes (Hospitalization, Other)
  Sender: FDA-Public Use
  Company Number: DE-JNJFOC-20180411115

PATIENT
  Sex: Male

DRUGS (32)
  1. DOXORUBICIN HYDROCHLORIDE. [Suspect]
     Active Substance: DOXORUBICIN HYDROCHLORIDE
     Indication: B-CELL LYMPHOMA
     Route: 042
     Dates: start: 20160210, end: 20160210
  2. RITUXIMAB. [Suspect]
     Active Substance: RITUXIMAB
     Indication: B-CELL LYMPHOMA
     Dosage: EVERY 14 DAY FOR 1 DAY
     Route: 042
     Dates: start: 20151215, end: 20151215
  3. PEGFILGRASTIM [Suspect]
     Active Substance: PEGFILGRASTIM
     Indication: B-CELL LYMPHOMA
     Dosage: DAY 4 FOR 1 DAY
     Route: 058
     Dates: start: 20151219, end: 20151219
  4. SULFAMETHOXAZOLE W/TRIMETHOPRIM [Concomitant]
     Active Substance: SULFAMETHOXAZOLE\TRIMETHOPRIM
     Indication: INFECTION PROPHYLAXIS
     Dosage: 1-0-1, 2/WEEK
     Route: 048
     Dates: start: 20151212
  5. LEVODOPA [Concomitant]
     Active Substance: LEVODOPA
     Indication: RESTLESS LEGS SYNDROME
     Dosage: 1/2 EVERY 2 BDAY
     Route: 048
  6. COTRIM FORTE [Concomitant]
     Active Substance: SULFAMETHOXAZOLE\TRIMETHOPRIM
     Indication: INFECTION PROPHYLAXIS
     Dosage: 2/WEEKLY
     Route: 048
     Dates: start: 20151205
  7. PREDNISOLONE. [Suspect]
     Active Substance: PREDNISOLONE
     Indication: B-CELL LYMPHOMA
     Dosage: DAY 2 TO 6 FOR 5 DAYS
     Route: 048
     Dates: start: 20151202, end: 20151206
  8. CYCLOPHOSPHAMIDE. [Suspect]
     Active Substance: CYCLOPHOSPHAMIDE
     Indication: B-CELL LYMPHOMA
     Dosage: DATE OF MOST RECENT DOSES PRIOR TO ATRIAL FIBRILLATION: 10/FEB/2016) (1 IN 14 D)
     Route: 042
     Dates: start: 20160210, end: 20160210
  9. BISOPROLOL [Concomitant]
     Active Substance: BISOPROLOL
     Indication: HYPERTENSION
     Dosage: 2 IN 1 D
     Route: 048
  10. ENOXAPARIN SODIUM. [Concomitant]
     Active Substance: ENOXAPARIN SODIUM
     Dosage: 2 IN 1 D
     Route: 058
     Dates: start: 20151023, end: 20160318
  11. DOXORUBICIN HYDROCHLORIDE. [Suspect]
     Active Substance: DOXORUBICIN HYDROCHLORIDE
     Indication: B-CELL LYMPHOMA
     Dosage: EVERY 14 DAY FOR 1 DAY
     Route: 042
     Dates: start: 20151216
  12. RITUXIMAB. [Suspect]
     Active Substance: RITUXIMAB
     Indication: B-CELL LYMPHOMA
     Dosage: 1 IN 14 D
     Route: 042
     Dates: start: 20151201
  13. PREDNISOLONE. [Suspect]
     Active Substance: PREDNISOLONE
     Indication: B-CELL LYMPHOMA
     Dosage: DAY 2-6 FOR 5 DAYS, LAST DOSE PRIOR TO SYNCOPE- 19/DEC/2015
     Route: 048
     Dates: start: 20151215, end: 20151219
  14. PREDNISOLONE. [Suspect]
     Active Substance: PREDNISOLONE
     Indication: B-CELL LYMPHOMA
     Dosage: ON DAY 2 AND 6 FOR 5 DAYS
     Route: 048
     Dates: start: 20160210, end: 20160214
  15. OXYCODON HCL AL [Concomitant]
     Indication: PAIN
     Dosage: 2 IN 1 D
     Route: 048
  16. ACICLOVIR [Concomitant]
     Active Substance: ACYCLOVIR
     Indication: INFECTION PROPHYLAXIS
     Dosage: 3 IN 1 D
     Route: 048
     Dates: start: 20151204
  17. CIPROFLOXACIN. [Concomitant]
     Active Substance: CIPROFLOXACIN
     Indication: INFECTION PROPHYLAXIS
     Dosage: D6-12 POST CHEMO (2 IN 1 D)
     Route: 048
     Dates: start: 20151208
  18. VINCRISTINE [Suspect]
     Active Substance: VINCRISTINE
     Indication: B-CELL LYMPHOMA
     Dosage: MOST RECENT DOSE PRIOR TO DYSPNEA (1 IN 14 D)
     Route: 042
     Dates: start: 20151202, end: 20151202
  19. VINCRISTINE [Suspect]
     Active Substance: VINCRISTINE
     Indication: B-CELL LYMPHOMA
     Dosage: DATE OF MOST RECENT DOSES PRIOR TO ATRIAL FIBRILLATION: 10/FEB/2016 (1 IN 14 D)
     Route: 042
     Dates: start: 20160210, end: 20160210
  20. CARBIDOPA W/LEVODOPA [Concomitant]
     Active Substance: CARBIDOPA\LEVODOPA
     Indication: RESTLESS LEGS SYNDROME
     Dosage: 100/125, 1/2 TAB EVERY SECOND DAY
     Route: 048
  21. BISOPROLOL [Concomitant]
     Active Substance: BISOPROLOL
     Indication: HYPERTONIA
     Dosage: 2 IN 1 D
     Route: 048
  22. CLEXANE [Concomitant]
     Active Substance: ENOXAPARIN SODIUM
     Route: 065
     Dates: start: 20151023
  23. VINCRISTINE [Suspect]
     Active Substance: VINCRISTINE
     Indication: B-CELL LYMPHOMA
     Dosage: EVERY 14 DAY FOR 1 DAY
     Route: 042
     Dates: start: 20151216
  24. PEGFILGRASTIM [Suspect]
     Active Substance: PEGFILGRASTIM
     Indication: B-CELL LYMPHOMA
     Dosage: MOST RECENT DOSE PRIOR TO DYSPNEA (D4 OF EVERY 14 DAYS)
     Route: 058
     Dates: start: 20151204, end: 20151204
  25. COLECALCIFEROL [Concomitant]
     Active Substance: CHOLECALCIFEROL
     Indication: VITAMIN SUPPLEMENTATION
     Dosage: 1 IN 1 WK
     Route: 048
     Dates: start: 20151202
  26. PEGFILGRASTIM [Suspect]
     Active Substance: PEGFILGRASTIM
     Indication: B-CELL LYMPHOMA
     Dosage: DATE OF MOST RECENT DOSES PRIOR TO ATRIAL FIBRILLATION: 15/FEB/2016) (1 IN 1 D)
     Route: 058
     Dates: start: 20160215, end: 20160215
  27. PANTOPRAZOL [Concomitant]
     Active Substance: PANTOPRAZOLE SODIUM
     Dosage: 1 IN 1 D
     Route: 048
  28. ENALAPRIL MALEATE. [Concomitant]
     Active Substance: ENALAPRIL MALEATE
     Indication: HYPERTONIA
     Dosage: 2 IN 1 D
     Route: 048
  29. DOXORUBICIN HYDROCHLORIDE. [Suspect]
     Active Substance: DOXORUBICIN HYDROCHLORIDE
     Indication: B-CELL LYMPHOMA
     Dosage: 1 IN 14 D
     Route: 042
     Dates: start: 20151202, end: 20151202
  30. RITUXIMAB. [Suspect]
     Active Substance: RITUXIMAB
     Indication: B-CELL LYMPHOMA
     Dosage: 1 IN 14 D
     Route: 042
     Dates: start: 20160210, end: 20160210
  31. CYCLOPHOSPHAMIDE. [Suspect]
     Active Substance: CYCLOPHOSPHAMIDE
     Indication: B-CELL LYMPHOMA
     Dosage: MOST RECENT DOSE PRIOR TO DYSPNEA (1 IN 14 D)
     Route: 042
     Dates: start: 20151202, end: 20151202
  32. CYCLOPHOSPHAMIDE. [Suspect]
     Active Substance: CYCLOPHOSPHAMIDE
     Indication: B-CELL LYMPHOMA
     Dosage: EVERY 1 4 DAY FOR 1 DAY, LAST DOSE PRICR TO SYNCOPE- 16/DEC/2015
     Route: 042
     Dates: start: 20151216

REACTIONS (10)
  - Off label use [Unknown]
  - Phlebitis infective [Unknown]
  - Neutrophil count decreased [Unknown]
  - Dyspnoea [Recovered/Resolved]
  - Product use in unapproved indication [Unknown]
  - Atrial fibrillation [Recovered/Resolved]
  - Syncope [Recovered/Resolved]
  - White blood cell count decreased [Recovered/Resolved]
  - Erysipelas [Recovered/Resolved]
  - Device related infection [Unknown]

NARRATIVE: CASE EVENT DATE: 20151202
